FAERS Safety Report 6049242-2 (Version None)
Quarter: 2009Q1

REPORT INFORMATION
  Report Type: 
  Country: None (occurrence: None)
  Receive Date: 20090123
  Receipt Date: 20090114
  Transmission Date: 20090719
  Serious: Yes (Death, Hospitalization, Other)
  Sender: FDA-Public Use
  Company Number: BR-ABBOTT-08P-020-0478865-00

PATIENT
  Age: 73 Year
  Sex: Female
  Weight: 55 kg

DRUGS (2)
  1. HUMIRA [Suspect]
     Indication: RHEUMATOID ARTHRITIS
     Dates: start: 20080301, end: 20080601
  2. UNKNOWN CORTICOID [Concomitant]
     Indication: RHEUMATOID ARTHRITIS
     Dates: start: 20080601

REACTIONS (13)
  - ANAEMIA [None]
  - ARTHRALGIA [None]
  - BLOOD SODIUM DECREASED [None]
  - BRONCHOPULMONARY ASPERGILLOSIS [None]
  - DIZZINESS [None]
  - FUNGAL INFECTION [None]
  - HERPES VIRUS INFECTION [None]
  - INFLUENZA [None]
  - LEUKOPENIA [None]
  - LUNG NEOPLASM [None]
  - PYREXIA [None]
  - RENAL FAILURE [None]
  - RESPIRATORY FAILURE [None]
